FAERS Safety Report 9829901 (Version 1)
Quarter: 2014Q1

REPORT INFORMATION
  Report Type: Spontaneous
  Country: JP (occurrence: JP)
  Receive Date: 20140120
  Receipt Date: 20140120
  Transmission Date: 20141002
  Serious: Yes (Other)
  Sender: FDA-Public Use
  Company Number: JP-ASTELLAS-2014JP000393

PATIENT
  Age: 8 Year
  Sex: Female

DRUGS (8)
  1. TACROLIMUS [Suspect]
     Indication: PROPHYLAXIS AGAINST GRAFT VERSUS HOST DISEASE
     Route: 065
  2. TACROLIMUS [Suspect]
     Route: 065
  3. IMATINIB [Concomitant]
     Indication: ACUTE BIPHENOTYPIC LEUKAEMIA
     Route: 065
  4. IMATINIB [Concomitant]
     Route: 065
  5. FLUDARABINE [Concomitant]
     Indication: CORD BLOOD TRANSPLANT THERAPY
     Route: 065
  6. MELPHALAN [Concomitant]
     Indication: CORD BLOOD TRANSPLANT THERAPY
     Route: 065
  7. ETOPOSIDE [Concomitant]
     Indication: CORD BLOOD TRANSPLANT THERAPY
     Route: 065
  8. METHOTREXATE [Concomitant]
     Indication: PROPHYLAXIS AGAINST GRAFT VERSUS HOST DISEASE
     Route: 065

REACTIONS (2)
  - Drug ineffective [Unknown]
  - Acute graft versus host disease [Unknown]
